FAERS Safety Report 10084950 (Version 2)
Quarter: 2014Q2

REPORT INFORMATION
  Report Type: Report from Study
  Country: DE (occurrence: DE)
  Receive Date: 20140417
  Receipt Date: 20140529
  Transmission Date: 20141212
  Serious: Yes (Hospitalization)
  Sender: FDA-Public Use
  Company Number: DE-ABBVIE-14P-062-1226013-00

PATIENT
  Age: 62 Year
  Sex: Female
  Weight: 84 kg

DRUGS (15)
  1. HUMIRA [Suspect]
     Indication: PSORIASIS
     Route: 058
     Dates: start: 20090617, end: 20140226
  2. ANTIHYPERTENSIVES [Concomitant]
     Indication: PRODUCT USED FOR UNKNOWN INDICATION
  3. ANTI DIABETIC DRUGS [Concomitant]
     Indication: PRODUCT USED FOR UNKNOWN INDICATION
  4. VENLAFAXIN [Concomitant]
     Indication: DEPRESSION
     Route: 048
     Dates: start: 201109
  5. LORZAAR PLUS [Concomitant]
     Indication: HYPERTENSION
     Dates: start: 20100813, end: 20140402
  6. CANDESARTAN [Concomitant]
     Indication: HYPERTENSION
     Route: 048
     Dates: start: 20140303
  7. HCT [Concomitant]
     Indication: HYPERTENSION
     Route: 048
     Dates: start: 20140303
  8. VERAHEXAL [Concomitant]
     Indication: HYPERTENSION
     Route: 048
     Dates: start: 2011
  9. L-THYROXIN [Concomitant]
     Indication: HYPOTHYROIDISM
     Route: 048
     Dates: start: 2004
  10. EUCREAS [Concomitant]
     Indication: DIABETES MELLITUS
     Route: 048
     Dates: start: 20110606
  11. METFORMIN [Concomitant]
     Indication: DIABETES MELLITUS
     Route: 048
     Dates: start: 2006
  12. SIMVASTATIN [Concomitant]
     Indication: HYPERLIPIDAEMIA
     Route: 048
     Dates: start: 2004
  13. ACTRAPID [Concomitant]
     Indication: DIABETES MELLITUS
     Route: 058
     Dates: start: 20140304
  14. LANTUS [Concomitant]
     Indication: DIABETES MELLITUS
     Route: 058
     Dates: start: 2007, end: 201405
  15. LANTUS [Concomitant]
     Route: 058
     Dates: start: 201405

REACTIONS (6)
  - Skin exfoliation [Not Recovered/Not Resolved]
  - Rash erythematous [Not Recovered/Not Resolved]
  - Erythema [Not Recovered/Not Resolved]
  - Erythrodermic psoriasis [Recovering/Resolving]
  - Drug eruption [Unknown]
  - Psoriasis [Unknown]
